FAERS Safety Report 9237817 (Version 2)
Quarter: 2013Q3

REPORT INFORMATION
  Report Type: Spontaneous
  Country: US (occurrence: US)
  Receive Date: 20130418
  Receipt Date: 20130801
  Transmission Date: 20140515
  Serious: No
  Sender: FDA-Public Use
  Company Number: US-BIOGENIDEC-2013BI034179

PATIENT
  Age: 61 Year
  Sex: Male

DRUGS (1)
  1. TYSABRI [Suspect]
     Indication: MULTIPLE SCLEROSIS
     Route: 042
     Dates: start: 20130301

REACTIONS (6)
  - Stress [Recovered/Resolved]
  - Nuclear magnetic resonance imaging abnormal [Recovered/Resolved]
  - Gait disturbance [Not Recovered/Not Resolved]
  - Paraesthesia [Recovered/Resolved]
  - Muscular weakness [Recovered/Resolved]
  - Multiple sclerosis [Not Recovered/Not Resolved]
